FAERS Safety Report 8117383-1 (Version None)
Quarter: 2012Q1

REPORT INFORMATION
  Report Type: 
  Country: None (occurrence: None)
  Receive Date: 20120206
  Receipt Date: 20120130
  Transmission Date: 20120608
  Serious: Yes (Hospitalization)
  Sender: FDA-Public Use
  Company Number: JP-BRISTOL-MYERS SQUIBB COMPANY-16357691

PATIENT
  Age: 67 Year
  Sex: Male
  Weight: 65 kg

DRUGS (4)
  1. CISPLATIN [Suspect]
     Indication: GASTRIC CANCER
     Dosage: ON DAY 8 OF EACH CYCLE RECENT DOSE 6JAN12
     Route: 042
     Dates: start: 20120106
  2. NORVASC [Concomitant]
     Dates: start: 20110301
  3. CETUXIMAB [Suspect]
     Indication: GASTRIC CANCER
     Dosage: STRENGTH 5MG/ML RECENT DOSE:12JAN12:352MG
     Route: 042
     Dates: start: 20110916
  4. TEGAFUR + GIMERACIL + OTERACIL POTASSIUM [Suspect]
     Indication: GASTRIC CANCER
     Dosage: RECENT DOSE 29DEC11
     Route: 048
     Dates: start: 20110916

REACTIONS (1)
  - EMBOLISM [None]
